FAERS Safety Report 8342728-7 (Version None)
Quarter: 2012Q2

REPORT INFORMATION
  Report Type: 
  Country: None (occurrence: None)
  Receive Date: 20120503
  Receipt Date: 20120425
  Transmission Date: 20120825
  Serious: No
  Sender: FDA-Public Use
  Company Number: 2012-0001

PATIENT
  Sex: Female

DRUGS (4)
  1. GELNIQUE [Suspect]
     Indication: FAECAL INCONTINENCE
     Dosage: 1 SACHET DAILY, TOPICAL
     Route: 061
     Dates: start: 20120215
  2. GELNIQUE [Suspect]
     Indication: URINARY INCONTINENCE
     Dosage: 1 SACHET DAILY, TOPICAL
     Route: 061
     Dates: start: 20120215
  3. HYPOPHEN (STAR PHARMACEUTICALS) METHENAMINE 81.6 MG, BENZOIC ACID 9.0 [Suspect]
     Indication: URINARY INCONTINENCE
     Dosage: 1 TAB BID, ORAL
     Route: 048
     Dates: start: 20120208
  4. HYPOPHEN (STAR PHARMACEUTICALS) METHENAMINE 81.6 MG, BENZOIC ACID 9.0 [Suspect]
     Indication: FAECAL INCONTINENCE
     Dosage: 1 TAB BID, ORAL
     Route: 048
     Dates: start: 20120208

REACTIONS (5)
  - FATIGUE [None]
  - VISION BLURRED [None]
  - SKIN DISCOLOURATION [None]
  - BLOOD PRESSURE DIASTOLIC INCREASED [None]
  - MYALGIA [None]
